FAERS Safety Report 17954947 (Version 1)
Quarter: 2020Q2

REPORT INFORMATION
  Report Type: Report from Study
  Country: None (occurrence: US)
  Receive Date: 20200629
  Receipt Date: 20200629
  Transmission Date: 20200714
  Serious: Yes (Other)
  Sender: FDA-Public Use
  Company Number: US-ABBVIE-19K-163-3140125-00

PATIENT
  Age: 73 Year
  Sex: Male

DRUGS (4)
  1. IMBRUVICA [Suspect]
     Active Substance: IBRUTINIB
     Indication: B-CELL SMALL LYMPHOCYTIC LYMPHOMA
     Dosage: 280 MG, QD
     Route: 048
     Dates: start: 20190308
  2. IMBRUVICA [Suspect]
     Active Substance: IBRUTINIB
     Dosage: 1 X IMBRUVICA 70MG CAP WITH 2 X 140MG CAPS DAILY = 350MG DAILY
     Route: 048
  3. IMBRUVICA [Suspect]
     Active Substance: IBRUTINIB
     Dosage: 210 MG, QD
     Route: 048
     Dates: start: 20190310
  4. IMBRUVICA [Suspect]
     Active Substance: IBRUTINIB
     Route: 048

REACTIONS (7)
  - Increased tendency to bruise [Unknown]
  - Blood immunoglobulin M decreased [Unknown]
  - Onychoclasis [Unknown]
  - Nail disorder [Unknown]
  - Dry eye [Unknown]
  - Blood immunoglobulin M increased [Recovering/Resolving]
  - Nasopharyngitis [Not Recovered/Not Resolved]

NARRATIVE: CASE EVENT DATE: 201903
